FAERS Safety Report 20165352 (Version 1)
Quarter: 2021Q4

REPORT INFORMATION
  Report Type: Spontaneous
  Country: IT (occurrence: IT)
  Receive Date: 20211209
  Receipt Date: 20211209
  Transmission Date: 20220304
  Serious: Yes (Life-Threatening, Hospitalization, Other)
  Sender: FDA-Public Use
  Company Number: IT-NORDICGR-2021002571

PATIENT
  Age: 30 Year
  Sex: Female

DRUGS (2)
  1. MISOPROSTOL [Suspect]
     Active Substance: MISOPROSTOL
     Indication: Abortion induced
     Dosage: 400 UG, CYCLIC (THREE DOSES OF MISOPROSTOL 400UG, ORALLY EVERY 3H)
     Route: 048
  2. MIFEPRISTONE [Suspect]
     Active Substance: MIFEPRISTONE
     Indication: Abortion induced
     Dosage: 200 MG, SINGLE
     Route: 048

REACTIONS (4)
  - Uterine rupture [Recovered/Resolved]
  - Urinary bladder rupture [Recovered/Resolved]
  - Vaginal haemorrhage [Recovered/Resolved]
  - Off label use [Unknown]
